FAERS Safety Report 18511623 (Version 2)
Quarter: 2020Q4

REPORT INFORMATION
  Report Type: Report from Study
  Country: FR (occurrence: FR)
  Receive Date: 20201117
  Receipt Date: 20201203
  Transmission Date: 20210114
  Serious: Yes (Death, Other)
  Sender: FDA-Public Use
  Company Number: FR-BIOVITRUM-2020FR6410

PATIENT
  Age: 59 Year
  Sex: Male

DRUGS (11)
  1. IVERMECTIN. [Concomitant]
     Active Substance: IVERMECTIN
  2. KINERET [Suspect]
     Active Substance: ANAKINRA
     Dosage: 100 MG/0.67 ML
     Route: 042
     Dates: start: 20200419, end: 20200419
  3. SOLU-MEDROL [Concomitant]
     Active Substance: METHYLPREDNISOLONE SODIUM SUCCINATE
     Indication: ANTIINFLAMMATORY THERAPY
     Route: 042
     Dates: start: 20200422, end: 20200426
  4. PROPOFOL. [Concomitant]
     Active Substance: PROPOFOL
  5. ESOMEPRAZOLE. [Concomitant]
     Active Substance: ESOMEPRAZOLE MAGNESIUM
  6. HEPARIN [Concomitant]
     Active Substance: HEPARIN SODIUM
  7. REMIFENTANIL [Concomitant]
     Active Substance: REMIFENTANIL
  8. MIDAZOLAM. [Concomitant]
     Active Substance: MIDAZOLAM
  9. KINERET [Suspect]
     Active Substance: ANAKINRA
     Indication: CORONAVIRUS INFECTION
     Dosage: 100 MG/0.67 ML
     Route: 042
     Dates: start: 20200413, end: 20200418
  10. KINERET [Suspect]
     Active Substance: ANAKINRA
     Dosage: 100 MG/0.67 ML
     Route: 042
     Dates: start: 20200420, end: 20200420
  11. TAZOCILLINE [Concomitant]
     Active Substance: PIPERACILLIN SODIUM\TAZOBACTAM SODIUM

REACTIONS (4)
  - Pneumonia bacterial [Fatal]
  - Thrombocytopenia [Not Recovered/Not Resolved]
  - Enterobacter infection [Fatal]
  - Septic shock [Fatal]

NARRATIVE: CASE EVENT DATE: 20200428
